FAERS Safety Report 8065820-3 (Version None)
Quarter: 2012Q1

REPORT INFORMATION
  Report Type: 
  Country: None (occurrence: None)
  Receive Date: 20120124
  Receipt Date: 20120113
  Transmission Date: 20120608
  Serious: Yes (Other)
  Sender: FDA-Public Use
  Company Number: CHPA2012CA001299

PATIENT
  Sex: Male

DRUGS (1)
  1. OTRIVIN [Suspect]
     Indication: NASAL CONGESTION
     Dosage: 1 BOTTLE USED EVERY 2 WEEKS
     Route: 045

REACTIONS (4)
  - NASAL CONGESTION [None]
  - INCORRECT DRUG ADMINISTRATION DURATION [None]
  - REBOUND EFFECT [None]
  - DRUG DEPENDENCE [None]
